FAERS Safety Report 8014698-2 (Version None)
Quarter: 2011Q4

REPORT INFORMATION
  Report Type: 
  Country: None (occurrence: None)
  Receive Date: 20111229
  Receipt Date: 20111220
  Transmission Date: 20120403
  Serious: Yes (Other)
  Sender: FDA-Public Use
  Company Number: US-ASTRAZENECA-2011SE58702

PATIENT
  Age: 54 Year
  Sex: Female

DRUGS (6)
  1. CYANOCOBALAMIN [Concomitant]
     Dosage: 1 TWICE DAILY
  2. KLONOPIN [Concomitant]
  3. ELAVIL [Concomitant]
  4. NEXIUM [Suspect]
     Route: 048
  5. VALIUM [Concomitant]
     Dosage: 1/2 PILL 3 TIMES A DAY
  6. REPREXAIN [Concomitant]
     Indication: HEADACHE
     Dosage: PRN

REACTIONS (19)
  - SPINAL COLUMN STENOSIS [None]
  - PAIN IN EXTREMITY [None]
  - MIGRAINE [None]
  - STIFF-MAN SYNDROME [None]
  - INTERVERTEBRAL DISC DEGENERATION [None]
  - BACK PAIN [None]
  - SPINAL OSTEOARTHRITIS [None]
  - NEUROPATHY PERIPHERAL [None]
  - POLYNEUROPATHY [None]
  - VISUAL IMPAIRMENT [None]
  - SLEEP APNOEA SYNDROME [None]
  - LUMBAR RADICULOPATHY [None]
  - MUSCLE SPASMS [None]
  - PAIN [None]
  - HEADACHE [None]
  - MALAISE [None]
  - OBESITY [None]
  - SNORING [None]
  - TORTICOLLIS [None]
